FAERS Safety Report 4766182-7 (Version None)
Quarter: 2005Q3

REPORT INFORMATION
  Report Type: 
  Country: None (occurrence: None)
  Receive Date: 20050909
  Receipt Date: 20050825
  Transmission Date: 20060218
  Serious: Yes (Other)
  Sender: FDA-Public Use
  Company Number: 12168

PATIENT
  Age: 19 Year
  Sex: Female

DRUGS (3)
  1. ETOPOSIDE [Suspect]
     Indication: CHEMOTHERAPY
     Dosage: 334 MG BID IV
     Route: 042
     Dates: start: 20050701, end: 20050703
  2. CYTARABINE [Suspect]
     Indication: CHEMOTHERAPY
     Dosage: 334 MG BID IV
     Route: 042
     Dates: start: 20050701, end: 20050703
  3. FLUCONAZOLE [Concomitant]

REACTIONS (1)
  - BRADYCARDIA [None]
